APPROVED DRUG PRODUCT: ZOLPIDEM TARTRATE
Active Ingredient: ZOLPIDEM TARTRATE
Strength: 6.25MG
Dosage Form/Route: TABLET, EXTENDED RELEASE;ORAL
Application: A078148 | Product #002
Applicant: PH HEALTH LTD
Approved: Apr 14, 2011 | RLD: No | RS: No | Type: DISCN